FAERS Safety Report 23790354 (Version 2)
Quarter: 2024Q2

REPORT INFORMATION
  Report Type: Spontaneous
  Country: US (occurrence: US)
  Receive Date: 20240427
  Receipt Date: 20240521
  Transmission Date: 20240716
  Serious: No
  Sender: FDA-Public Use
  Company Number: US-HALEON-2169994

PATIENT

DRUGS (1)
  1. VOLTAREN ARTHRITIS PAIN [Suspect]
     Active Substance: DICLOFENAC SODIUM
     Indication: Product used for unknown indication
     Dosage: EXPDATE:202609EXPDATE:202609

REACTIONS (3)
  - Product package associated injury [Unknown]
  - Wrong technique in product usage process [Unknown]
  - Product complaint [Unknown]
